FAERS Safety Report 22220853 (Version 1)
Quarter: 2023Q2

REPORT INFORMATION
  Report Type: Spontaneous
  Country: DK (occurrence: DK)
  Receive Date: 20230418
  Receipt Date: 20230418
  Transmission Date: 20230722
  Serious: Yes (Hospitalization, Other)
  Sender: FDA-Public Use
  Company Number: None

PATIENT
  Age: 66 Year
  Sex: Female
  Weight: 70 kg

DRUGS (4)
  1. KENALOG [Suspect]
     Active Substance: TRIAMCINOLONE ACETONIDE
     Indication: Tendon disorder
     Dosage: STRENGTH: 40 MG/ML
     Route: 030
     Dates: start: 20230224, end: 20230224
  2. TRESIBA [Concomitant]
     Active Substance: INSULIN DEGLUDEC
     Indication: Diabetes mellitus
     Dates: start: 20170808
  3. ATORVASTATIN [Concomitant]
     Active Substance: ATORVASTATIN
     Indication: Hypercholesterolaemia
     Dates: start: 20191108
  4. CARBOCAINE [Concomitant]
     Active Substance: MEPIVACAINE HYDROCHLORIDE
     Indication: Tendon disorder
     Dosage: STRENGTH: 20 MG/ML
     Dates: start: 20230224, end: 20230224

REACTIONS (3)
  - Palpitations [Recovered/Resolved]
  - Pulmonary embolism [Recovering/Resolving]
  - Dyspnoea [Recovered/Resolved]

NARRATIVE: CASE EVENT DATE: 20230227
